FAERS Safety Report 7568780-4 (Version None)
Quarter: 2011Q2

REPORT INFORMATION
  Report Type: 
  Country: None (occurrence: None)
  Receive Date: 20110623
  Receipt Date: 20110615
  Transmission Date: 20111010
  Serious: Yes (Other)
  Sender: FDA-Public Use
  Company Number: US-JNJFOC-20110609022

PATIENT
  Sex: Female

DRUGS (4)
  1. CLOZAPINE [Concomitant]
     Route: 048
  2. INVEGA SUSTENNA [Suspect]
     Indication: PRODUCT USED FOR UNKNOWN INDICATION
     Route: 030
  3. BROMOCRIPTINE MESYLATE [Concomitant]
     Route: 065
  4. COGENTIN [Concomitant]
     Route: 065

REACTIONS (2)
  - PITUITARY TUMOUR [None]
  - BLOOD PROLACTIN INCREASED [None]
